FAERS Safety Report 7522040-6 (Version None)
Quarter: 2011Q2

REPORT INFORMATION
  Report Type: 
  Country: None (occurrence: None)
  Receive Date: 20110603
  Receipt Date: 20110505
  Transmission Date: 20111010
  Serious: Yes (Other)
  Sender: FDA-Public Use
  Company Number: US-BAYER-2011-040070

PATIENT
  Sex: Male
  Weight: 68 kg

DRUGS (5)
  1. PLAVIX [Concomitant]
  2. ANTIHYPERTENSIVES [Concomitant]
  3. ALEVE (CAPLET) [Suspect]
     Dosage: 3 DF, QD
     Route: 048
     Dates: start: 20110428, end: 20110502
  4. ATENOLOL [Concomitant]
  5. CRESTOR [Concomitant]

REACTIONS (1)
  - HAEMATURIA [None]
